FAERS Safety Report 9368777 (Version 1)
Quarter: 2013Q2

REPORT INFORMATION
  Report Type: Spontaneous
  Country: MT (occurrence: MT)
  Receive Date: 20130626
  Receipt Date: 20130626
  Transmission Date: 20140414
  Serious: Yes (Other)
  Sender: FDA-Public Use
  Company Number: PHHY2013MT064390

PATIENT
  Sex: 0

DRUGS (2)
  1. VALPROIC ACID [Suspect]
  2. OLANZAPINE [Interacting]

REACTIONS (2)
  - Neutropenia [Unknown]
  - Drug interaction [Unknown]
